FAERS Safety Report 9933877 (Version 2)
Quarter: 2014Q1

REPORT INFORMATION
  Report Type: Report from Study
  Country: US (occurrence: US)
  Receive Date: 20140228
  Receipt Date: 20140228
  Transmission Date: 20141002
  Serious: No
  Sender: FDA-Public Use
  Company Number: US-MYLANLABS-2013S1017843

PATIENT
  Age: 49 Year
  Sex: Male

DRUGS (7)
  1. AMNESTEEM CAPSULES [Suspect]
     Indication: BRAIN NEOPLASM
     Route: 048
     Dates: start: 201307, end: 201307
  2. AMNESTEEM CAPSULES [Suspect]
     Indication: OFF LABEL USE
     Route: 048
     Dates: start: 201307, end: 201307
  3. PEPCID [Concomitant]
     Route: 048
     Dates: start: 2013
  4. KEPPRA [Concomitant]
     Route: 048
     Dates: start: 2013
  5. EMEND /01627301/ [Concomitant]
     Route: 048
     Dates: start: 2013
  6. REGLAN [Concomitant]
     Route: 048
     Dates: start: 2013
  7. TEMODAR [Concomitant]
     Indication: BRAIN NEOPLASM
     Route: 048
     Dates: start: 2013

REACTIONS (6)
  - Depressed mood [Recovered/Resolved]
  - Headache [Recovered/Resolved]
  - Irritability [Recovered/Resolved]
  - Rash [Recovered/Resolved]
  - Night sweats [Recovered/Resolved]
  - Fatigue [Recovered/Resolved]
